FAERS Safety Report 7600732-8 (Version None)
Quarter: 2011Q3

REPORT INFORMATION
  Report Type: 
  Country: None (occurrence: None)
  Receive Date: 20110708
  Receipt Date: 20110708
  Transmission Date: 20111222
  Serious: Yes (Disabling)
  Sender: FDA-Public Use
  Company Number: None

PATIENT

DRUGS (1)
  1. ENOXAPARIN SODIUM [Suspect]
     Indication: THROMBOSIS PROPHYLAXIS
     Dosage: 40MG DAILY SQ
     Route: 058
     Dates: start: 20110624, end: 20110705

REACTIONS (2)
  - MEDICATION ERROR [None]
  - INJURY ASSOCIATED WITH DEVICE [None]
